FAERS Safety Report 5497284-8 (Version None)
Quarter: 2007Q4

REPORT INFORMATION
  Report Type: 
  Country: None (occurrence: None)
  Receive Date: 20071025
  Receipt Date: 20071015
  Transmission Date: 20080405
  Serious: Yes (Other)
  Sender: FDA-Public Use
  Company Number: BR-ROCHE-525951

PATIENT
  Age: 28 Year
  Sex: Female
  Weight: 61 kg

DRUGS (3)
  1. ISOTRETINOIN [Suspect]
     Indication: ACNE
     Dosage: STRENGTH REPORTED AS 10+20 MG.
     Route: 048
     Dates: start: 20071012, end: 20071014
  2. ISOTRETINOIN [Suspect]
     Dosage: STRENGTH REPORTED AS 10+20 MG.
     Route: 048
     Dates: start: 20060101, end: 20060101
  3. DIANE 35 [Concomitant]
     Indication: CONTRACEPTION
     Route: 048

REACTIONS (2)
  - NO ADVERSE REACTION [None]
  - PREGNANCY [None]
